FAERS Safety Report 20771967 (Version 1)
Quarter: 2022Q2

REPORT INFORMATION
  Report Type: Report from Study
  Country: IN (occurrence: IN)
  Receive Date: 20220501
  Receipt Date: 20220501
  Transmission Date: 20220720
  Serious: Yes (Death, Hospitalization)
  Sender: FDA-Public Use
  Company Number: IN-NOVARTISPH-NVSC2022IN100179

PATIENT
  Age: 68 Year
  Sex: Male

DRUGS (1)
  1. CERITINIB [Suspect]
     Active Substance: CERITINIB
     Indication: Non-small cell lung cancer
     Dosage: 300 MG, QD
     Route: 065
     Dates: start: 20211109

REACTIONS (3)
  - Death [Fatal]
  - Hyperthermia [Fatal]
  - Sepsis [Fatal]

NARRATIVE: CASE EVENT DATE: 20220401
